FAERS Safety Report 12169063 (Version 1)
Quarter: 2016Q1

REPORT INFORMATION
  Report Type: Spontaneous
  Country: US (occurrence: US)
  Receive Date: 20160310
  Receipt Date: 20160310
  Transmission Date: 20160526
  Serious: No
  Sender: FDA-Public Use
  Company Number: US-ELI_LILLY_AND_COMPANY-US201602004565

PATIENT
  Sex: Male

DRUGS (5)
  1. HUMALOG [Suspect]
     Active Substance: INSULIN LISPRO
     Indication: TYPE 2 DIABETES MELLITUS
     Dosage: 16 U, EACH MORNING
     Route: 065
     Dates: start: 201511
  2. HUMALOG [Suspect]
     Active Substance: INSULIN LISPRO
     Dosage: 24 U, EACH EVENING
     Route: 065
     Dates: start: 201511
  3. HUMALOG [Suspect]
     Active Substance: INSULIN LISPRO
     Dosage: 16 U, QD
     Route: 065
     Dates: start: 201511
  4. LANTUS [Suspect]
     Active Substance: INSULIN GLARGINE
     Indication: PRODUCT USED FOR UNKNOWN INDICATION
     Dosage: UNK, UNKNOWN
     Route: 065
  5. LASIX [Concomitant]
     Active Substance: FUROSEMIDE
     Indication: PRODUCT USED FOR UNKNOWN INDICATION

REACTIONS (4)
  - Abdominal discomfort [Unknown]
  - Pruritus [Recovered/Resolved]
  - Injection site pain [Unknown]
  - Blood glucose abnormal [Unknown]
